FAERS Safety Report 21421195 (Version 1)
Quarter: 2022Q4

REPORT INFORMATION
  Report Type: Spontaneous
  Country: IN (occurrence: IN)
  Receive Date: 20221007
  Receipt Date: 20221007
  Transmission Date: 20230112
  Serious: Yes (Hospitalization, Other)
  Sender: FDA-Public Use
  Company Number: IN-PIRAMAL ENTERPRISES LIMITED-2022-PEL-000568

PATIENT

DRUGS (10)
  1. SEVOFLURANE [Suspect]
     Active Substance: SEVOFLURANE
     Indication: Maintenance of anaesthesia
     Dosage: 2 PERCENT
     Route: 065
  2. ONDANSETRON [Suspect]
     Active Substance: ONDANSETRON
     Indication: Premedication
     Dosage: 4 MILLIGRAM
     Route: 042
  3. SUCCINYLCHOLINE [Suspect]
     Active Substance: SUCCINYLCHOLINE
     Indication: Neuromuscular blockade
     Dosage: 100 MILLIGRAM
     Route: 042
  4. OXYGEN [Concomitant]
     Active Substance: OXYGEN
     Indication: Maintenance of anaesthesia
     Dosage: 50 PERCENT2, AIR/OXYGEN MIXTURE
     Route: 065
  5. FENTANYL [Concomitant]
     Active Substance: FENTANYL
     Indication: Premedication
     Dosage: 100 MICROGRAM
     Route: 042
  6. FENTANYL [Concomitant]
     Active Substance: FENTANYL
     Indication: Maintenance of anaesthesia
     Dosage: 40 MICROGRAM, INTERMITTENT BOLUSES
     Route: 065
  7. ATRACURIUM [Concomitant]
     Active Substance: ATRACURIUM
     Indication: Maintenance of anaesthesia
     Dosage: 10 MILLIGRAM
     Route: 065
  8. PROPOFOL [Concomitant]
     Active Substance: PROPOFOL
     Indication: Induction of anaesthesia
     Dosage: 140 MILLIGRAM
     Route: 042
  9. MIDAZOLAM [Concomitant]
     Active Substance: MIDAZOLAM
     Indication: Premedication
     Dosage: 1 MILLIGRAM
     Route: 042
  10. LIGNOCAINE                         /00033401/ [Concomitant]
     Indication: Premedication
     Dosage: 90 MILLIGRAM
     Route: 042

REACTIONS (3)
  - Long QT syndrome congenital [Recovered/Resolved]
  - Ventricular fibrillation [Recovered/Resolved]
  - Ventricular tachyarrhythmia [Recovered/Resolved]
